FAERS Safety Report 20536863 (Version 1)
Quarter: 2022Q1

REPORT INFORMATION
  Report Type: Spontaneous
  Country: AU (occurrence: AU)
  Receive Date: 20220302
  Receipt Date: 20220302
  Transmission Date: 20220423
  Serious: Yes (Other)
  Sender: FDA-Public Use
  Company Number: AU-JNJFOC-20211202433

PATIENT
  Age: 27 Year
  Sex: Female

DRUGS (3)
  1. SIMPONI [Suspect]
     Active Substance: GOLIMUMAB
     Indication: Axial spondyloarthritis
     Route: 058
     Dates: start: 20200211
  2. COSENTYX [Suspect]
     Active Substance: SECUKINUMAB
     Indication: Product used for unknown indication
     Route: 065
  3. COSENTYX [Suspect]
     Active Substance: SECUKINUMAB
     Route: 065
     Dates: start: 20200830

REACTIONS (9)
  - Psoriatic arthropathy [Unknown]
  - Arthralgia [Unknown]
  - Back pain [Unknown]
  - Dactylitis [Unknown]
  - Drug ineffective [Unknown]
  - Pain [Unknown]
  - Psoriasis [Unknown]
  - Swelling [Unknown]
  - Synovitis [Unknown]

NARRATIVE: CASE EVENT DATE: 20200225
